FAERS Safety Report 16235251 (Version 1)
Quarter: 2019Q2

REPORT INFORMATION
  Report Type: Spontaneous
  Country: GR (occurrence: GR)
  Receive Date: 20190424
  Receipt Date: 20190424
  Transmission Date: 20190711
  Serious: Yes (Other)
  Sender: FDA-Public Use
  Company Number: GR-MYLANLABS-2019M1037514

PATIENT
  Age: 59 Year
  Sex: Male

DRUGS (4)
  1. XOZAL [Concomitant]
     Active Substance: LEVOCETIRIZINE
     Dosage: UNK
  2. KLARICID (CLARITHROMYCIN) [Suspect]
     Active Substance: CLARITHROMYCIN
     Indication: ARTHROPOD BITE
     Dosage: 500 MILLIGRAM, BID
     Route: 048
     Dates: start: 201904, end: 201904
  3. LIPITOR [Concomitant]
     Active Substance: ATORVASTATIN CALCIUM
     Dosage: UNK
  4. MEDROL [Concomitant]
     Active Substance: METHYLPREDNISOLONE
     Dosage: UNK

REACTIONS (4)
  - Salivary hypersecretion [Not Recovered/Not Resolved]
  - Ventricular arrhythmia [Recovered/Resolved]
  - Swollen tongue [Not Recovered/Not Resolved]
  - Dysgeusia [Not Recovered/Not Resolved]

NARRATIVE: CASE EVENT DATE: 201904
